FAERS Safety Report 25629148 (Version 1)
Quarter: 2025Q3

REPORT INFORMATION
  Report Type: Spontaneous
  Country: US (occurrence: US)
  Receive Date: 20250731
  Receipt Date: 20250731
  Transmission Date: 20251021
  Serious: No
  Sender: SANOFI AVENTIS
  Company Number: US-SA-2025SA221937

PATIENT
  Age: 43 Year
  Sex: Female

DRUGS (1)
  1. DUPIXENT [Suspect]
     Active Substance: DUPILUMAB
     Indication: Eczema
     Route: 058
     Dates: start: 20250518, end: 20250518

REACTIONS (5)
  - Localised infection [Not Recovered/Not Resolved]
  - Pain [Not Recovered/Not Resolved]
  - Rebound eczema [Unknown]
  - Injection site pain [Unknown]
  - Intentional product misuse [Unknown]

NARRATIVE: CASE EVENT DATE: 20250101
